FAERS Safety Report 9255051 (Version 4)
Quarter: 2014Q1

REPORT INFORMATION
  Report Type: Spontaneous
  Country: US (occurrence: US)
  Receive Date: 20130425
  Receipt Date: 20140131
  Transmission Date: 20141002
  Serious: Yes (Hospitalization, Disabling, Other)
  Sender: FDA-Public Use
  Company Number: US-ASTRAZENECA-2013SE27525

PATIENT
  Age: 63 Year
  Sex: Female

DRUGS (15)
  1. NEXIUM [Suspect]
     Indication: GASTROOESOPHAGEAL REFLUX DISEASE
     Dosage: ONCE OR TWICE DAILY
     Route: 048
  2. NEXIUM [Suspect]
     Indication: GASTROOESOPHAGEAL REFLUX DISEASE
     Route: 048
     Dates: start: 200505, end: 201104
  3. NEXIUM [Suspect]
     Indication: GASTROOESOPHAGEAL REFLUX DISEASE
     Route: 048
     Dates: start: 200611
  4. NEXIUM [Suspect]
     Indication: GASTROOESOPHAGEAL REFLUX DISEASE
     Route: 048
     Dates: start: 20070609
  5. PRILOSEC [Suspect]
     Route: 048
  6. PROTONIX [Concomitant]
  7. ZANTAC [Concomitant]
     Dosage: ONCE DAILY
     Dates: start: 201210, end: 201212
  8. TUMS/CALCIUM [Concomitant]
     Dosage: A NEEDED
  9. ROLAIDS [Concomitant]
     Dosage: A NEEDED
  10. METOPROLOL [Concomitant]
     Indication: BLOOD PRESSURE INCREASED
  11. CRESTOR [Concomitant]
     Indication: BLOOD CHOLESTEROL
  12. VITAMIN D [Concomitant]
  13. FISH OIL [Concomitant]
  14. ZETIA [Concomitant]
     Dates: start: 20070609
  15. ACIPHEX [Concomitant]

REACTIONS (15)
  - Osteoporosis [Unknown]
  - Arthritis [Unknown]
  - Arthropathy [Unknown]
  - Atrial fibrillation [Unknown]
  - Femur fracture [Unknown]
  - Uterine disorder [Unknown]
  - Bone disorder [Unknown]
  - Thoracic vertebral fracture [Unknown]
  - Osteopenia [Unknown]
  - Back pain [Unknown]
  - Calcium deficiency [Unknown]
  - Scoliosis [Unknown]
  - Vitamin D deficiency [Unknown]
  - Cough [Unknown]
  - Osteoarthritis [Unknown]
